FAERS Safety Report 10528240 (Version 2)
Quarter: 2014Q4

REPORT INFORMATION
  Report Type: Spontaneous
  Country: BE (occurrence: BE)
  Receive Date: 20141020
  Receipt Date: 20141020
  Transmission Date: 20150528
  Serious: Yes (Other)
  Sender: FDA-Public Use
  Company Number: BE-GLAXOSMITHKLINE-B1028934A

PATIENT
  Age: 52 Year
  Sex: Male
  Weight: 76 kg

DRUGS (10)
  1. ZEFFIX [Suspect]
     Active Substance: LAMIVUDINE
     Dosage: UNK
     Dates: start: 20140919
  2. LISINOPRIL. [Concomitant]
     Active Substance: LISINOPRIL
     Indication: CARDIAC FAILURE
  3. BISOPROLOL [Suspect]
     Active Substance: BISOPROLOL
     Indication: CARDIAC FAILURE
     Dosage: 2.5 MG, UNK
     Dates: start: 201403
  4. ZEFFIX [Suspect]
     Active Substance: LAMIVUDINE
     Indication: PRODUCT USED FOR UNKNOWN INDICATION
     Dosage: 100 MG, 84 TABLETS
     Route: 048
     Dates: start: 20090401, end: 20140815
  5. ALDACTONE [Concomitant]
     Active Substance: SPIRONOLACTONE
     Indication: CARDIAC FAILURE
     Dosage: 25 MG, UNK
     Dates: start: 201403
  6. MAGNESIUM [Concomitant]
     Active Substance: MAGNESIUM
  7. BEFACT FORTE [Concomitant]
     Indication: PRODUCT USED FOR UNKNOWN INDICATION
     Dosage: UNK
     Dates: start: 201403
  8. D-CURE [Concomitant]
     Indication: PRODUCT USED FOR UNKNOWN INDICATION
     Dosage: UNK, UNK
     Dates: start: 201403
  9. ZESTRIL [Suspect]
     Active Substance: LISINOPRIL
     Indication: PRODUCT USED FOR UNKNOWN INDICATION
  10. ASAFLOW [Concomitant]
     Active Substance: ASPIRIN
     Indication: CARDIAC FAILURE
     Dosage: 80 MG, UNK
     Dates: start: 201403

REACTIONS (7)
  - Muscular weakness [Recovering/Resolving]
  - Psoriatic arthropathy [Unknown]
  - Gait disturbance [Unknown]
  - Myalgia [Recovering/Resolving]
  - Arthralgia [Recovering/Resolving]
  - Paraesthesia [Unknown]
  - Neuralgia [Recovering/Resolving]

NARRATIVE: CASE EVENT DATE: 20140615
